FAERS Safety Report 6971944-1 (Version None)
Quarter: 2010Q3

REPORT INFORMATION
  Report Type: 
  Country: None (occurrence: None)
  Receive Date: 20100908
  Receipt Date: 20100908
  Transmission Date: 20110219
  Serious: Yes (Hospitalization, Disabling, Other)
  Sender: FDA-Public Use
  Company Number: None

PATIENT
  Sex: Male
  Weight: 102.3 kg

DRUGS (3)
  1. EQUATE ORIGINAL NASAL SPRAY OXYMETAZOLINE HCL 0.05% PERRIGO [Suspect]
     Indication: MULTIPLE ALLERGIES
     Dosage: MINIMAL ATOMIZER SPRAY DOSAGE 2-4 TIMES DAILY ENDOSINUSIAL
     Route: 006
     Dates: start: 19951201, end: 20090115
  2. AFRIN ORIGINAL NASAL SPRAY OXYMETAZOLINE HCL 0.05% SCHERING-PLOUGH [Suspect]
     Indication: MULTIPLE ALLERGIES
     Dosage: MINIMAL ATOMIZER SPRAY DOSAGE 2-4 TIMES DAILY ENDOSINUSIAL (OFF AND ON FOR 4 YEARS PRIOR)
     Route: 006
  3. TYLENOL [Concomitant]

REACTIONS (12)
  - ACTIVITIES OF DAILY LIVING IMPAIRED [None]
  - ANXIETY [None]
  - BLOOD UREA INCREASED [None]
  - BRAIN INJURY [None]
  - DELUSION [None]
  - HEART RATE IRREGULAR [None]
  - HOSTILITY [None]
  - HYPERTENSION [None]
  - INSOMNIA [None]
  - PSYCHOTIC DISORDER [None]
  - SCHIZOPHRENIA, PARANOID TYPE [None]
  - SUSPICIOUSNESS [None]
